FAERS Safety Report 15172901 (Version 1)
Quarter: 2018Q3

REPORT INFORMATION
  Report Type: Spontaneous
  Country: US (occurrence: US)
  Receive Date: 20180720
  Receipt Date: 20180720
  Transmission Date: 20181010
  Serious: No
  Sender: FDA-Public Use
  Company Number: US-ROCHE-1965382

PATIENT
  Sex: Female

DRUGS (19)
  1. RECLAST [Concomitant]
     Active Substance: ZOLEDRONIC ACID
  2. ACTONEL [Concomitant]
     Active Substance: RISEDRONATE SODIUM
  3. VIOXX [Concomitant]
     Active Substance: ROFECOXIB
  4. IMIDAZOLE [Concomitant]
     Active Substance: IMIDAZOLE
  5. LEXAPRO [Concomitant]
     Active Substance: ESCITALOPRAM OXALATE
  6. MINIPRESS [Concomitant]
     Active Substance: PRAZOSIN HYDROCHLORIDE
  7. ULTRAM [Concomitant]
     Active Substance: TRAMADOL HYDROCHLORIDE
  8. PROCARDIA (UNITED STATES) [Concomitant]
     Route: 048
  9. MOTRIN [Concomitant]
     Active Substance: IBUPROFEN
  10. INDOCIN (UNITED STATES) [Concomitant]
  11. TENORETIC [Concomitant]
     Active Substance: ATENOLOL\CHLORTHALIDONE
  12. DIFLUCAN [Concomitant]
     Active Substance: FLUCONAZOLE
  13. BACLOFEN. [Concomitant]
     Active Substance: BACLOFEN
  14. BONVIVA [Suspect]
     Active Substance: IBANDRONATE SODIUM
     Indication: PRODUCT USED FOR UNKNOWN INDICATION
     Route: 065
  15. CLEOCIN [Concomitant]
     Active Substance: CLINDAMYCIN PHOSPHATE
  16. NORCO [Concomitant]
     Active Substance: ACETAMINOPHEN\HYDROCODONE BITARTRATE
  17. CEFTIN [Concomitant]
     Active Substance: CEFUROXIME AXETIL
     Route: 048
  18. NORVASC [Concomitant]
     Active Substance: AMLODIPINE BESYLATE
     Route: 048
  19. ERYTHROMYCIN. [Concomitant]
     Active Substance: ERYTHROMYCIN

REACTIONS (1)
  - Hypersensitivity [Unknown]
